FAERS Safety Report 14526414 (Version 2)
Quarter: 2018Q1

REPORT INFORMATION
  Report Type: Spontaneous
  Country: FR (occurrence: FR)
  Receive Date: 20180213
  Receipt Date: 20180214
  Transmission Date: 20180509
  Serious: Yes (Death, Other)
  Sender: FDA-Public Use
  Company Number: FR-PFIZER INC-2018061366

PATIENT
  Age: 90 Year
  Sex: Female
  Weight: 76 kg

DRUGS (9)
  1. PANTOPRAZOLE [Suspect]
     Active Substance: PANTOPRAZOLE
     Indication: GASTRITIS
     Dosage: 20 MG, QD
     Route: 048
  2. ORACILLINE [Concomitant]
     Active Substance: PENICILLIN V
     Dosage: UNK UNK, QD
     Route: 048
  3. STROMECTOL [Suspect]
     Active Substance: IVERMECTIN
     Indication: ACARODERMATITIS
     Dosage: UNK
     Route: 048
  4. PANTOPRAZOLE [Interacting]
     Active Substance: PANTOPRAZOLE
     Dosage: UNK
     Route: 048
  5. SPECIAFOLDINE [Concomitant]
     Active Substance: FOLIC ACID
     Dosage: 15 MG, 1/WEEK
     Route: 048
     Dates: start: 20171215, end: 20171229
  6. ALPRAZOLAM. [Concomitant]
     Active Substance: ALPRAZOLAM
     Dosage: 0.5 MG, QD
     Route: 048
  7. METFORMIN HYDROCHLORIDE. [Concomitant]
     Active Substance: METFORMIN HYDROCHLORIDE
     Indication: TYPE 2 DIABETES MELLITUS
     Dosage: 1000 MG, QD
     Route: 048
  8. IMETH [Interacting]
     Active Substance: METHOTREXATE SODIUM
     Indication: PEMPHIGOID
     Dosage: 15 MG, QD
     Route: 048
     Dates: start: 20171213, end: 20171227
  9. BISOPROLOL [Concomitant]
     Active Substance: BISOPROLOL
     Indication: ATRIAL FIBRILLATION
     Dosage: 5 MG, QD
     Route: 048

REACTIONS (7)
  - Drug interaction [Fatal]
  - Rash [Fatal]
  - Lung disorder [Fatal]
  - Conjunctivitis [Fatal]
  - Diarrhoea [Fatal]
  - Agranulocytosis [Fatal]
  - Cheilitis [Fatal]

NARRATIVE: CASE EVENT DATE: 20171213
